FAERS Safety Report 8566240-5 (Version None)
Quarter: 2012Q3

REPORT INFORMATION
  Report Type: 
  Country: None (occurrence: None)
  Receive Date: 20120803
  Receipt Date: 20120723
  Transmission Date: 20120928
  Serious: No
  Sender: FDA-Public Use
  Company Number: US-ASTRAZENECA-2009UW13710

PATIENT
  Age: 37 Year
  Sex: Female
  Weight: 79.4 kg

DRUGS (14)
  1. LITHIUM CARBONATE [Concomitant]
  2. KLONOPIN [Concomitant]
     Dates: start: 20080625
  3. KLONOPIN [Concomitant]
  4. SEROQUEL [Suspect]
     Indication: BIPOLAR DISORDER
     Route: 048
     Dates: start: 20060101, end: 20080101
  5. SEROQUEL [Suspect]
     Route: 048
     Dates: start: 20080625
  6. SEROQUEL [Suspect]
     Route: 048
     Dates: start: 20080625
  7. PROZAC [Concomitant]
     Dates: start: 20080625
  8. SEROQUEL [Suspect]
     Route: 048
     Dates: start: 20070801
  9. SEROQUEL [Suspect]
     Indication: SCHIZOPHRENIA
     Route: 048
     Dates: start: 20060101, end: 20080101
  10. ADDERALL XR 10 [Concomitant]
     Dates: start: 20080625
  11. SYNTHROID [Concomitant]
     Dosage: 100 MCG PER DAY
     Dates: start: 20080625
  12. ANCEF [Concomitant]
     Dosage: EVERY 8 HOURS
     Dates: start: 20080625
  13. SEROQUEL [Suspect]
     Route: 048
     Dates: start: 20070801
  14. LITHIUM CARBONATE [Concomitant]
     Dates: start: 20080625

REACTIONS (4)
  - TYPE 1 DIABETES MELLITUS [None]
  - GESTATIONAL DIABETES [None]
  - OBESITY [None]
  - DIABETES MELLITUS [None]
